FAERS Safety Report 10503724 (Version 2)
Quarter: 2015Q1

REPORT INFORMATION
  Report Type: Spontaneous
  Country: US (occurrence: None)
  Receive Date: 20141006
  Receipt Date: 20150115
  Transmission Date: 20150720
  Serious: Yes (Other)
  Sender: FDA-Public Use
  Company Number: 2014-US-012445

PATIENT
  Sex: Female

DRUGS (2)
  1. XYREM [Suspect]
     Active Substance: SODIUM OXYBATE
     Indication: NARCOLEPSY
     Route: 048
     Dates: start: 201102
  2. CELLCEPT [Suspect]
     Active Substance: MYCOPHENOLATE MOFETIL\MYCOPHENOLATE MOFETIL HYDROCHLORIDE
     Indication: AUTOIMMUNE DISORDER

REACTIONS (9)
  - Cerebrospinal fluid leakage [None]
  - Facial bones fracture [None]
  - Brain injury [None]
  - Loss of consciousness [None]
  - Staphylococcal infection [None]
  - Sinusitis [None]
  - Dry skin [None]
  - Insomnia [None]
  - Autoimmune disorder [None]
